FAERS Safety Report 7202445-3 (Version None)
Quarter: 2010Q4

REPORT INFORMATION
  Report Type: 
  Country: None (occurrence: None)
  Receive Date: 20101229
  Receipt Date: 20101222
  Transmission Date: 20110411
  Serious: Yes (Other)
  Sender: FDA-Public Use
  Company Number: A0901573A

PATIENT
  Age: 85 Year
  Sex: Female
  Weight: 62.1 kg

DRUGS (5)
  1. CARVEDILOL [Suspect]
     Indication: BLOOD PRESSURE
     Dosage: 6.25MG PER DAY
  2. BENADRYL [Suspect]
     Indication: SLEEP DISORDER
     Dosage: 1TAB PER DAY
     Route: 048
     Dates: start: 20091201, end: 20101201
  3. AMLODIPINE BESYLATE [Suspect]
     Indication: BLOOD PRESSURE
     Dosage: 5MG TWICE PER DAY
     Route: 048
  4. MICARDIS [Suspect]
     Dosage: 80MG PER DAY
     Route: 065
  5. ACETYLSALICYLIC ACID SRT [Concomitant]
     Dosage: 81MG PER DAY
     Route: 065

REACTIONS (5)
  - DIZZINESS [None]
  - FALL [None]
  - OFF LABEL USE [None]
  - SYNCOPE [None]
  - WRONG TECHNIQUE IN DRUG USAGE PROCESS [None]
